FAERS Safety Report 6221313-7 (Version None)
Quarter: 2009Q2

REPORT INFORMATION
  Report Type: 
  Country: None (occurrence: None)
  Receive Date: 20090610
  Receipt Date: 20090526
  Transmission Date: 20091009
  Serious: Yes (Other)
  Sender: FDA-Public Use
  Company Number: NL-TYCO HEALTHCARE/MALLINCKRODT-T200901123

PATIENT

DRUGS (7)
  1. MORPHINE [Suspect]
     Indication: POSTOPERATIVE ANALGESIA
     Dosage: 0.5 MG/HR, UNK
     Route: 042
  2. MORPHINE [Suspect]
     Dosage: 1.0 MG/HR
     Route: 042
  3. MORPHINE [Suspect]
     Dosage: 1 MG/ML, PRN VIA PCA
     Route: 042
  4. DROPERIDOL [Suspect]
     Indication: ANTIEMETIC SUPPORTIVE CARE
     Dosage: 2.5 MG, PRN, VIA PCA WITH MORPHINE
     Route: 042
  5. ANALGESICS [Concomitant]
     Indication: SURGERY
  6. FLUTICASONE W/SALMETEROL [Concomitant]
     Indication: WHEEZING
  7. ALBUTEROL [Concomitant]
     Indication: WHEEZING

REACTIONS (2)
  - DRUG ADMINISTRATION ERROR [None]
  - OVERDOSE [None]
